FAERS Safety Report 6286552-8 (Version None)
Quarter: 2009Q3

REPORT INFORMATION
  Report Type: 
  Country: None (occurrence: None)
  Receive Date: 20090728
  Receipt Date: 20090723
  Transmission Date: 20100115
  Serious: Yes (Disabling, Other)
  Sender: FDA-Public Use
  Company Number: FR-BRISTOL-MYERS SQUIBB COMPANY-14714273

PATIENT
  Age: 64 Year
  Sex: Female

DRUGS (4)
  1. CETUXIMAB [Suspect]
     Indication: HEAD AND NECK CANCER
     Route: 042
     Dates: start: 20090427
  2. CARBOPLATIN [Suspect]
     Indication: HEAD AND NECK CANCER
     Route: 042
     Dates: start: 20090504
  3. FLUOROURACIL [Suspect]
     Indication: HEAD AND NECK CANCER
     Route: 042
     Dates: start: 20090504
  4. RADIOTHERAPY [Suspect]
     Indication: HEAD AND NECK CANCER
     Dosage: 1 DF = 44 GY
     Dates: start: 20090504

REACTIONS (2)
  - DERMATITIS [None]
  - MUCOSAL INFLAMMATION [None]
